FAERS Safety Report 7415182-7 (Version None)
Quarter: 2011Q2

REPORT INFORMATION
  Report Type: 
  Country: None (occurrence: None)
  Receive Date: 20110414
  Receipt Date: 20110408
  Transmission Date: 20111010
  Serious: Yes (Hospitalization)
  Sender: FDA-Public Use
  Company Number: PHHO2010DE11105

PATIENT
  Sex: Female
  Weight: 85 kg

DRUGS (2)
  1. RAD 666 [Suspect]
     Indication: RENAL TRANSPLANT
     Dosage: 1 MG DAILY
     Route: 048
     Dates: start: 20100526, end: 20100712
  2. MYFORTIC [Suspect]
     Indication: RENAL TRANSPLANT
     Dosage: 1080 MG DAILY
     Route: 048
     Dates: start: 20100331

REACTIONS (9)
  - POST PROCEDURAL HAEMORRHAGE [None]
  - RENAL FAILURE [None]
  - OEDEMA [None]
  - DYSPNOEA [None]
  - HYPOKALAEMIA [None]
  - RENAL ARTERY STENOSIS [None]
  - KIDNEY TRANSPLANT REJECTION [None]
  - BLOOD CREATININE INCREASED [None]
  - ARTERIOVENOUS FISTULA [None]
